FAERS Safety Report 7903247-2 (Version None)
Quarter: 2011Q4

REPORT INFORMATION
  Report Type: 
  Country: None (occurrence: None)
  Receive Date: 20111107
  Receipt Date: 20111024
  Transmission Date: 20120403
  Serious: Yes (Disabling)
  Sender: FDA-Public Use
  Company Number: 1000024134

PATIENT
  Age: 62 Year
  Sex: Female
  Weight: 79.4 kg

DRUGS (4)
  1. ADVAIR DISKUS (FLUTICASONE, SALMETEROL) (POWDER) [Concomitant]
  2. ROFLUMILAST (ROFLUMILAST) (TABLETS) [Suspect]
     Indication: CHRONIC OBSTRUCTIVE PULMONARY DISEASE
     Dosage: 500 MCG (500 MCG, 1 IN 1 D), ORAL
     Route: 048
     Dates: start: 20110510, end: 20110510
  3. SPIRIVA (TIOTROPIUIM BROMIDE) (CAPSULES) [Concomitant]
  4. VENTOLIN [Concomitant]

REACTIONS (4)
  - PARAESTHESIA [None]
  - OEDEMA PERIPHERAL [None]
  - GAIT DISTURBANCE [None]
  - BACK PAIN [None]
